FAERS Safety Report 19879011 (Version 2)
Quarter: 2021Q4

REPORT INFORMATION
  Report Type: Report from Study
  Country: US (occurrence: US)
  Receive Date: 20210924
  Receipt Date: 20211115
  Transmission Date: 20220303
  Serious: Yes (Hospitalization, Other)
  Sender: FDA-Public Use
  Company Number: US-ABBVIE-21K-163-4090172-00

PATIENT
  Age: 59 Year
  Sex: Female

DRUGS (5)
  1. HUMIRA [Suspect]
     Active Substance: ADALIMUMAB
     Indication: Psoriatic arthropathy
     Dosage: CITRATE FREE
     Route: 058
  2. MODERNA COVID-19 VACCINE [Suspect]
     Active Substance: CX-024414
     Indication: COVID-19 immunisation
     Route: 030
     Dates: start: 20210326, end: 20210326
  3. MODERNA COVID-19 VACCINE [Suspect]
     Active Substance: CX-024414
     Route: 030
     Dates: start: 20210426, end: 20210426
  4. VITAMIN D NOS [Concomitant]
     Active Substance: VITAMIN D NOS
     Indication: Product used for unknown indication
  5. CELEBREX [Concomitant]
     Active Substance: CELECOXIB
     Indication: Arthritis

REACTIONS (13)
  - Loss of consciousness [Recovered/Resolved]
  - Fall [Recovered/Resolved]
  - Vaccination site erythema [Recovered/Resolved]
  - Vaccination site papule [Recovered/Resolved]
  - Therapeutic response unexpected [Recovering/Resolving]
  - Pre-existing condition improved [Recovering/Resolving]
  - Back injury [Unknown]
  - Neck injury [Unknown]
  - Limb crushing injury [Recovering/Resolving]
  - Hypoaesthesia [Not Recovered/Not Resolved]
  - Pyrexia [Recovered/Resolved]
  - Nausea [Recovered/Resolved]
  - Paraesthesia [Not Recovered/Not Resolved]

NARRATIVE: CASE EVENT DATE: 20210301
